FAERS Safety Report 11211828 (Version 2)
Quarter: 2015Q2

REPORT INFORMATION
  Report Type: Spontaneous
  Country: FR (occurrence: FR)
  Receive Date: 20150623
  Receipt Date: 20150629
  Transmission Date: 20150821
  Serious: Yes (Death, Hospitalization)
  Sender: FDA-Public Use
  Company Number: FR-EISAI MEDICAL RESEARCH-EC-2015-007803

PATIENT
  Sex: Female

DRUGS (1)
  1. HALAVEN [Suspect]
     Active Substance: ERIBULIN MESYLATE
     Indication: BREAST CANCER METASTATIC
     Dosage: UNKNOWN
     Route: 041
     Dates: start: 2012, end: 20121101

REACTIONS (4)
  - Platelet count decreased [Fatal]
  - Ascites [Fatal]
  - Fatigue [Fatal]
  - Liver disorder [Fatal]

NARRATIVE: CASE EVENT DATE: 2012
